FAERS Safety Report 5002234-4 (Version None)
Quarter: 2006Q2

REPORT INFORMATION
  Report Type: 
  Country: None (occurrence: None)
  Receive Date: 20060511
  Receipt Date: 20060511
  Transmission Date: 20061013
  Serious: No
  Sender: FDA-Public Use
  Company Number: None

PATIENT
  Age: 88 Year
  Sex: Male
  Weight: 75.2971 kg

DRUGS (10)
  1. COUMADIN [Suspect]
     Indication: ATRIAL FIBRILLATION
     Dosage: 5 MG DAILY PO
     Route: 048
  2. ALDACTONE [Concomitant]
  3. ARANESP [Concomitant]
  4. AVELOX [Concomitant]
  5. LASIX [Concomitant]
  6. FLOMAX [Concomitant]
  7. MEVACOR [Concomitant]
  8. ROCEPHIN [Concomitant]
  9. PROTONIX [Concomitant]
  10. TOPROL-XL [Concomitant]

REACTIONS (2)
  - INTERNATIONAL NORMALISED RATIO INCREASED [None]
  - PROTHROMBIN TIME PROLONGED [None]
